FAERS Safety Report 11073701 (Version 4)
Quarter: 2015Q2

REPORT INFORMATION
  Report Type: Report from Study
  Country: FR (occurrence: FR)
  Receive Date: 20150428
  Receipt Date: 20150618
  Transmission Date: 20150821
  Serious: Yes (Death, Hospitalization, Other)
  Sender: FDA-Public Use
  Company Number: PHHY2015FR050629

PATIENT
  Age: 44 Year
  Sex: Male

DRUGS (2)
  1. FAMPYRA [Concomitant]
     Active Substance: DALFAMPRIDINE
     Indication: PRODUCT USED FOR UNKNOWN INDICATION
     Route: 065
  2. GILENYA [Suspect]
     Active Substance: FINGOLIMOD HYDROCHLORIDE
     Indication: MULTIPLE SCLEROSIS
     Dosage: 0.5 MG, QD
     Route: 048
     Dates: start: 20150212, end: 20150318

REACTIONS (6)
  - Fatigue [Unknown]
  - Limb discomfort [Unknown]
  - General physical health deterioration [Fatal]
  - Toxic shock syndrome [Fatal]
  - Lung disorder [Fatal]
  - Feeling abnormal [Unknown]

NARRATIVE: CASE EVENT DATE: 201503
